FAERS Safety Report 4437564-8 (Version None)
Quarter: 2004Q3

REPORT INFORMATION
  Report Type: 
  Country: None (occurrence: None)
  Receive Date: 20040827
  Receipt Date: 20040813
  Transmission Date: 20050211
  Serious: Yes (Hospitalization)
  Sender: FDA-Public Use
  Company Number: 2004-00467FE

PATIENT
  Age: 35 Year
  Sex: Female

DRUGS (5)
  1. PENTASA [Suspect]
     Indication: CROHN'S DISEASE
     Dosage: ORALLY
     Route: 048
     Dates: start: 19970101, end: 19990101
  2. PENTASA [Suspect]
     Indication: CROHN'S DISEASE
     Dosage: ORALLY
     Route: 048
     Dates: start: 20000101, end: 20000101
  3. PENTASA [Suspect]
     Indication: CROHN'S DISEASE
     Dosage: ORALLY
     Route: 048
     Dates: start: 20000101, end: 20000101
  4. PENTASA [Suspect]
     Indication: CROHN'S DISEASE
     Dosage: ORALLY
     Route: 048
     Dates: start: 20030226, end: 20030326
  5. CORTICOSTEROID [Concomitant]

REACTIONS (11)
  - BIOPSY KIDNEY ABNORMAL [None]
  - BLOOD CREATININE INCREASED [None]
  - CONDITION AGGRAVATED [None]
  - CREATININE RENAL CLEARANCE DECREASED [None]
  - DIARRHOEA [None]
  - ERYTHEMA NODOSUM [None]
  - GLOMERULOSCLEROSIS [None]
  - HAEMATOCHEZIA [None]
  - PYREXIA [None]
  - RENAL TUBULAR DISORDER [None]
  - TUBULOINTERSTITIAL NEPHRITIS [None]
